FAERS Safety Report 10086754 (Version 1)
Quarter: 2014Q2

REPORT INFORMATION
  Report Type: Spontaneous
  Country: CH (occurrence: CH)
  Receive Date: 20140418
  Receipt Date: 20140418
  Transmission Date: 20141212
  Serious: Yes (Hospitalization)
  Sender: FDA-Public Use
  Company Number: CH-PFIZER INC-2014108511

PATIENT
  Age: 71 Year
  Sex: Male

DRUGS (10)
  1. CORDARONE [Suspect]
     Dosage: 200 MG, DAILY
     Route: 048
  2. REMERON [Interacting]
     Indication: ANTIDEPRESSANT THERAPY
     Dosage: 15 MG DAILY IN THE EVENING
     Route: 048
     Dates: start: 20140307, end: 20140310
  3. CLOMETHIAZOLE [Suspect]
     Dosage: 500 MG, 2X/DAY
     Route: 048
     Dates: start: 20140306
  4. SINTROM [Concomitant]
     Dosage: UNK
  5. PLAVIX [Concomitant]
     Dosage: UNK
  6. BELOC [Concomitant]
     Dosage: UNK
  7. TOREM [Concomitant]
     Dosage: UNK
  8. SIMVASTATIN [Concomitant]
     Dosage: UNK
  9. PANTOZOL [Concomitant]
     Dosage: UNK
  10. DAXAS [Concomitant]
     Dosage: UNK

REACTIONS (7)
  - Drug interaction [Unknown]
  - Bradycardia [Recovering/Resolving]
  - Electrocardiogram QT prolonged [Recovered/Resolved]
  - Chronic obstructive pulmonary disease [Unknown]
  - Pneumonia [Unknown]
  - Depression [Unknown]
  - Sleep disorder [Unknown]
